FAERS Safety Report 7006041-2 (Version None)
Quarter: 2010Q3

REPORT INFORMATION
  Report Type: 
  Country: None (occurrence: None)
  Receive Date: 20100921
  Receipt Date: 20100907
  Transmission Date: 20110219
  Serious: Yes (Hospitalization)
  Sender: FDA-Public Use
  Company Number: DK-MYLANLABS-2010S1016365

PATIENT
  Age: 83 Year
  Sex: Female

DRUGS (3)
  1. TRANDOLAPRIL [Suspect]
     Indication: HYPERTENSION
     Dates: start: 20100825
  2. CENTYL MED KALIUMKLORID [Concomitant]
     Indication: HYPERTENSION
     Route: 048
  3. ELTROXIN [Concomitant]
     Indication: MYXOEDEMA

REACTIONS (3)
  - HYPERTENSION [None]
  - OEDEMA [None]
  - RENAL FAILURE [None]
